FAERS Safety Report 23556682 (Version 1)
Quarter: 2024Q1

REPORT INFORMATION
  Report Type: Spontaneous
  Country: JP (occurrence: JP)
  Receive Date: 20240223
  Receipt Date: 20240223
  Transmission Date: 20240410
  Serious: Yes (Death)
  Sender: FDA-Public Use
  Company Number: JP-asahikaseip-2024-AER-00923

PATIENT
  Sex: Male

DRUGS (1)
  1. RECLAST [Suspect]
     Active Substance: ZOLEDRONIC ACID
     Indication: Product used for unknown indication
     Dosage: 5 MG, Q12MO (INJECTION)
     Route: 041
     Dates: start: 20221216

REACTIONS (1)
  - Death [Fatal]
